FAERS Safety Report 12110663 (Version 1)
Quarter: 2016Q1

REPORT INFORMATION
  Report Type: Spontaneous
  Country: US (occurrence: US)
  Receive Date: 20160224
  Receipt Date: 20160224
  Transmission Date: 20160526
  Serious: No
  Sender: FDA-Public Use
  Company Number: US-JAZZ-2015-US-001594

PATIENT
  Sex: Female

DRUGS (1)
  1. PRIALT [Suspect]
     Active Substance: ZICONOTIDE ACETATE
     Dosage: UNK ?G, QH
     Route: 037

REACTIONS (5)
  - Cold sweat [Unknown]
  - Nausea [Unknown]
  - Abnormal dreams [Unknown]
  - Dry mouth [Unknown]
  - Photopsia [Unknown]
